FAERS Safety Report 5410448-4 (Version None)
Quarter: 2007Q3

REPORT INFORMATION
  Report Type: 
  Country: None (occurrence: None)
  Receive Date: 20070810
  Receipt Date: 20070124
  Transmission Date: 20080115
  Serious: Yes (Other)
  Sender: FDA-Public Use
  Company Number: A0635697A

PATIENT
  Age: 14 Year
  Sex: Female

DRUGS (2)
  1. PAXIL [Suspect]
     Indication: PANIC DISORDER
     Dosage: 1TSP TWICE PER DAY
     Route: 048
     Dates: start: 20060701
  2. ASTELIN [Concomitant]

REACTIONS (1)
  - HICCUPS [None]
